FAERS Safety Report 17861400 (Version 1)
Quarter: 2020Q2

REPORT INFORMATION
  Report Type: Spontaneous
  Country: CN (occurrence: CN)
  Receive Date: 20200604
  Receipt Date: 20200604
  Transmission Date: 20200714
  Serious: Yes (Congenital Anomaly, Other)
  Sender: FDA-Public Use
  Company Number: CN-SA-2020SA140953

PATIENT

DRUGS (1)
  1. CLEXANE [Suspect]
     Active Substance: ENOXAPARIN SODIUM
     Indication: SYMPTOMATIC TREATMENT
     Dosage: 0.4 ML, QD
     Route: 058
     Dates: start: 20200525, end: 20200525

REACTIONS (1)
  - Shock symptom [Recovering/Resolving]

NARRATIVE: CASE EVENT DATE: 20200525
